FAERS Safety Report 15964923 (Version 1)
Quarter: 2019Q1

REPORT INFORMATION
  Report Type: Spontaneous
  Country: FR (occurrence: FR)
  Receive Date: 20190215
  Receipt Date: 20190215
  Transmission Date: 20190418
  Serious: Yes (Hospitalization)
  Sender: FDA-Public Use
  Company Number: FR-ACCORD-107357

PATIENT
  Age: 78 Year
  Sex: Male
  Weight: 72 kg

DRUGS (4)
  1. KARDEGIC [Suspect]
     Active Substance: ASPIRIN DL-LYSINE
     Indication: CARDIOVASCULAR EVENT PROPHYLAXIS
     Dosage: 160 MG,  SACHET
     Route: 048
     Dates: start: 2007
  2. ATORVASTATIN/ATORVASTATIN CALCIUM [Suspect]
     Active Substance: ATORVASTATIN CALCIUM
     Indication: CARDIOVASCULAR EVENT PROPHYLAXIS
     Route: 048
     Dates: start: 2007
  3. PERINDOPRIL MYLAN [Concomitant]
     Active Substance: PERINDOPRIL ERBUMINE
  4. ALEPSAL [Concomitant]
     Active Substance: ATROPA BELLADONNA\CAFFEINE\PHENOBARBITAL

REACTIONS (2)
  - Ischaemic stroke [Recovered/Resolved]
  - Drug ineffective [Unknown]

NARRATIVE: CASE EVENT DATE: 20180613
